FAERS Safety Report 11032447 (Version 4)
Quarter: 2015Q3

REPORT INFORMATION
  Report Type: Spontaneous
  Country: US (occurrence: US)
  Receive Date: 20150415
  Receipt Date: 20150902
  Transmission Date: 20151125
  Serious: Yes (Hospitalization, Disabling, Other)
  Sender: FDA-Public Use
  Company Number: US-ENDO PHARMACEUTICALS INC.-201410124

PATIENT
  Age: 63 Year
  Sex: Male
  Weight: 77.63 kg

DRUGS (4)
  1. TESTOSTERONE. [Suspect]
     Active Substance: TESTOSTERONE
     Indication: ANDROGEN REPLACEMENT THERAPY
     Route: 065
  2. TESTIM [Suspect]
     Active Substance: TESTOSTERONE
     Indication: ANDROGEN REPLACEMENT THERAPY
     Route: 062
     Dates: start: 20120313
  3. TESTIM [Suspect]
     Active Substance: TESTOSTERONE
     Indication: HYPOGONADISM
     Dosage: 1/2 TUBE
     Route: 062
     Dates: start: 2012, end: 2013
  4. PRINIVIL [Concomitant]
     Active Substance: LISINOPRIL
     Indication: MALIGNANT HYPERTENSION
     Route: 065

REACTIONS (2)
  - Cerebrovascular accident [Not Recovered/Not Resolved]
  - Lacunar infarction [Unknown]

NARRATIVE: CASE EVENT DATE: 20130615
